FAERS Safety Report 7545610-8 (Version None)
Quarter: 2011Q2

REPORT INFORMATION
  Report Type: 
  Country: None (occurrence: None)
  Receive Date: 20110614
  Receipt Date: 20110606
  Transmission Date: 20111010
  Serious: Yes (Other)
  Sender: FDA-Public Use
  Company Number: JP-ASTELLAS-2011JP003779

PATIENT
  Age: 29 Year
  Sex: Female

DRUGS (3)
  1. PREDNISOLONE [Concomitant]
     Indication: IMMUNOSUPPRESSANT DRUG THERAPY
     Dosage: UNK
     Route: 065
  2. PROGRAF [Suspect]
     Indication: IMMUNOSUPPRESSANT DRUG THERAPY
     Dosage: UNK
     Route: 065
  3. AZATHIOPRINE [Concomitant]
     Indication: IMMUNOSUPPRESSANT DRUG THERAPY
     Dosage: UNK
     Route: 065

REACTIONS (2)
  - DRUG INEFFECTIVE [None]
  - CHRONIC GRAFT VERSUS HOST DISEASE [None]
